FAERS Safety Report 15298810 (Version 2)
Quarter: 2018Q3

REPORT INFORMATION
  Report Type: Report from Study
  Country: None (occurrence: IL)
  Receive Date: 20180821
  Receipt Date: 20180907
  Transmission Date: 20181010
  Serious: Yes (Hospitalization)
  Sender: FDA-Public Use
  Company Number: IL-ABBVIE-18S-082-2456230-00

PATIENT
  Age: 70 Year
  Sex: Female

DRUGS (1)
  1. DUODOPA [Suspect]
     Active Substance: CARBIDOPA\LEVODOPA
     Indication: PARKINSON^S DISEASE
     Dosage: MD: 13ML, CD: 3.2ML/HOUR, ED: 1.3ML
     Route: 050

REACTIONS (3)
  - Hypotension [Unknown]
  - Dysphagia [Unknown]
  - Sepsis [Unknown]

NARRATIVE: CASE EVENT DATE: 2018
